FAERS Safety Report 18298412 (Version 1)
Quarter: 2020Q3

REPORT INFORMATION
  Report Type: Spontaneous
  Country: US (occurrence: US)
  Receive Date: 20200922
  Receipt Date: 20200922
  Transmission Date: 20201103
  Serious: No
  Sender: FDA-Public Use
  Company Number: US-AMARIN PHARMA, INC.-2020AMR000027

PATIENT
  Sex: Female

DRUGS (1)
  1. VASCEPA [Suspect]
     Active Substance: ICOSAPENT ETHYL
     Indication: FAMILIAL RISK FACTOR
     Route: 048
     Dates: start: 201910

REACTIONS (3)
  - Cranial nerve disorder [Not Recovered/Not Resolved]
  - Off label use [Unknown]
  - Underdose [Unknown]
